FAERS Safety Report 4701663-3 (Version None)
Quarter: 2005Q2

REPORT INFORMATION
  Report Type: 
  Country: None (occurrence: None)
  Receive Date: 20050627
  Receipt Date: 20050616
  Transmission Date: 20051028
  Serious: Yes (Death)
  Sender: FDA-Public Use
  Company Number: 2005090313

PATIENT
  Age: 78 Year
  Sex: Male

DRUGS (5)
  1. BEXTRA [Suspect]
     Indication: ILL-DEFINED DISORDER
     Dosage: ORAL
     Route: 048
     Dates: start: 20041001
  2. ADALAT XL (NIFEDIPINE) [Concomitant]
  3. SEROQUEL [Concomitant]
  4. ZYPREXA [Concomitant]
  5. GLYBURIDE [Concomitant]

REACTIONS (1)
  - CEREBROVASCULAR ACCIDENT [None]
